FAERS Safety Report 6833985-4 (Version None)
Quarter: 2010Q3

REPORT INFORMATION
  Report Type: 
  Country: None (occurrence: None)
  Receive Date: 20100712
  Receipt Date: 20070408
  Transmission Date: 20110219
  Serious: No
  Sender: FDA-Public Use
  Company Number: US-PFIZER INC-2007028450

PATIENT
  Sex: Male
  Weight: 72.57 kg

DRUGS (9)
  1. CHANTIX [Suspect]
     Indication: SMOKING CESSATION THERAPY
     Dates: start: 20070402
  2. PRILOSEC [Concomitant]
  3. PHAZYME [Concomitant]
  4. ZANAFLEX [Concomitant]
  5. ATIVAN [Concomitant]
  6. ULTRAM [Concomitant]
  7. NORCO [Concomitant]
  8. MOTRIN [Concomitant]
  9. LISINOPRIL [Concomitant]

REACTIONS (2)
  - CHEST PAIN [None]
  - FLATULENCE [None]
